FAERS Safety Report 17613634 (Version 2)
Quarter: 2020Q2

REPORT INFORMATION
  Report Type: Report from Study
  Country: None (occurrence: FR)
  Receive Date: 20200402
  Receipt Date: 20200406
  Transmission Date: 20200713
  Serious: Yes (Hospitalization)
  Sender: FDA-Public Use
  Company Number: FR-ABBVIE-20K-056-3347264-00

PATIENT
  Age: 76 Year
  Sex: Male

DRUGS (2)
  1. DUODOPA [Suspect]
     Active Substance: CARBIDOPA\LEVODOPA
     Dosage: CONTINOUS FLOW RATE 4.1 ML/H
     Route: 050
  2. DUODOPA [Suspect]
     Active Substance: CARBIDOPA\LEVODOPA
     Indication: PARKINSON^S DISEASE
     Dosage: CONTINOUS FLOW RATE 4.3 ML/H
     Route: 050
     Dates: start: 20140930

REACTIONS (3)
  - Hallucination [Unknown]
  - Coronavirus infection [Unknown]
  - Device programming error [Unknown]

NARRATIVE: CASE EVENT DATE: 20200330
